FAERS Safety Report 9402859 (Version 3)
Quarter: 2014Q1

REPORT INFORMATION
  Report Type: Spontaneous
  Country: US (occurrence: US)
  Receive Date: 20130716
  Receipt Date: 20140130
  Transmission Date: 20141002
  Serious: No
  Sender: FDA-Public Use
  Company Number: US-PFIZER INC-2013206911

PATIENT
  Age: 58 Year
  Sex: Male
  Weight: 69.84 kg

DRUGS (2)
  1. LYRICA [Suspect]
     Indication: NEURALGIA
     Dosage: 150 MG, 3X/DAY
     Dates: start: 2004, end: 201310
  2. DIVALPROEX [Concomitant]
     Indication: POST-TRAUMATIC STRESS DISORDER
     Dosage: 500 MG, DAILY

REACTIONS (1)
  - Pain [Not Recovered/Not Resolved]
